FAERS Safety Report 11646976 (Version 2)
Quarter: 2015Q4

REPORT INFORMATION
  Report Type: Spontaneous
  Country: FR (occurrence: FR)
  Receive Date: 20151020
  Receipt Date: 20151114
  Transmission Date: 20160304
  Serious: No
  Sender: FDA-Public Use
  Company Number: FR-EMD SERONO-8048235

PATIENT
  Sex: Female

DRUGS (1)
  1. REBIF [Suspect]
     Active Substance: INTERFERON BETA-1A
     Indication: MULTIPLE SCLEROSIS
     Route: 064
     Dates: start: 20110104, end: 20140707

REACTIONS (2)
  - No adverse event [Unknown]
  - Foetal exposure during pregnancy [Recovered/Resolved]
